FAERS Safety Report 4520880-9 (Version None)
Quarter: 2004Q4

REPORT INFORMATION
  Report Type: 
  Country: None (occurrence: None)
  Receive Date: 20041206
  Receipt Date: 20041129
  Transmission Date: 20050328
  Serious: Yes (Hospitalization)
  Sender: FDA-Public Use
  Company Number: GBWYE247601DEC04

PATIENT
  Age: 24 Year
  Sex: Male

DRUGS (8)
  1. EFFEXOR [Suspect]
     Dosage: 600MG
  2. ACAMPROSATE (ACAMPROSATE) [Suspect]
     Dosage: 7900MG
  3. CLOZARIL [Suspect]
     Dosage: SIX TIMES 450MG
  4. LAMOTRIGINE [Suspect]
     Dosage: 1200MG
  5. METFORMIN (METFORMIN) [Suspect]
     Dosage: 800MG
  6. SULPRID (SULPIRIDE) [Suspect]
     Dosage: 6400MG
  7. ZOPICLONE (ZOPICLONE) [Suspect]
     Dosage: 60MG
  8. ATENOLOL [Concomitant]

REACTIONS (3)
  - METABOLIC ACIDOSIS [None]
  - OVERDOSE [None]
  - SOMNOLENCE [None]
